FAERS Safety Report 9664203 (Version 1)
Quarter: 2013Q4

REPORT INFORMATION
  Report Type: Spontaneous
  Country: AU (occurrence: AU)
  Receive Date: 20131101
  Receipt Date: 20131101
  Transmission Date: 20140711
  Serious: Yes (Other)
  Sender: FDA-Public Use
  Company Number: AU-JNJFOC-20131018231

PATIENT
  Age: 55 Year
  Sex: Male

DRUGS (3)
  1. STELARA [Suspect]
     Indication: PSORIASIS
     Route: 058
     Dates: start: 201011
  2. NICOTINAMIDE [Concomitant]
     Indication: PSORIASIS
     Route: 065
  3. ACITRETIN [Concomitant]
     Indication: PSORIASIS
     Route: 065

REACTIONS (1)
  - Squamous cell carcinoma [Unknown]
